FAERS Safety Report 6570174-5 (Version None)
Quarter: 2010Q1

REPORT INFORMATION
  Report Type: 
  Country: None (occurrence: None)
  Receive Date: 20100204
  Receipt Date: 20100126
  Transmission Date: 20100710
  Serious: Yes (Other)
  Sender: FDA-Public Use
  Company Number: SE-PFIZER INC-2009278657

PATIENT
  Age: 28 Year
  Sex: Female

DRUGS (2)
  1. ZOLOFT [Suspect]
     Indication: ANXIETY
     Dosage: UNK
     Dates: end: 20080920
  2. ZOLOFT [Suspect]
     Indication: DEPRESSION

REACTIONS (3)
  - INSOMNIA [None]
  - MANIA [None]
  - MENTAL DISORDER [None]
